FAERS Safety Report 8592480-5 (Version None)
Quarter: 2012Q3

REPORT INFORMATION
  Report Type: 
  Country: None (occurrence: None)
  Receive Date: 20120814
  Receipt Date: 20120806
  Transmission Date: 20120928
  Serious: Yes (Other)
  Sender: FDA-Public Use
  Company Number: BR-ASTRAZENECA-2012SE56127

PATIENT
  Age: 59 Year
  Sex: Male

DRUGS (9)
  1. NEXIUM [Suspect]
     Route: 048
  2. METOPROLOL SUCCINATE [Suspect]
     Route: 048
     Dates: start: 20080101
  3. PLAVIX [Concomitant]
     Indication: INFARCTION
     Route: 048
     Dates: start: 20080101
  4. LIPITOR [Concomitant]
     Indication: INFARCTION
     Route: 048
     Dates: start: 20080101
  5. UNKNOWN EXPERIMENTAL MEDICATION [Concomitant]
  6. JANUVIA [Concomitant]
     Route: 048
     Dates: start: 20080101
  7. ASPIRIN [Concomitant]
     Indication: INFARCTION
     Route: 048
     Dates: start: 20080101
  8. EXJADE [Concomitant]
  9. NEXIUM [Suspect]
     Indication: ABDOMINAL PAIN UPPER
     Route: 048
     Dates: start: 20080101, end: 20120101

REACTIONS (4)
  - ANAEMIA [None]
  - MYELODYSPLASTIC SYNDROME [None]
  - ABDOMINAL PAIN UPPER [None]
  - DRUG INEFFECTIVE [None]
